FAERS Safety Report 5470245-0 (Version None)
Quarter: 2007Q3

REPORT INFORMATION
  Report Type: 
  Country: None (occurrence: None)
  Receive Date: 20070924
  Receipt Date: 20070910
  Transmission Date: 20080115
  Serious: Yes (Death, Hospitalization, Other)
  Sender: FDA-Public Use
  Company Number: 161343USA

PATIENT
  Age: 64 Year
  Sex: Female
  Weight: 81.6 kg

DRUGS (7)
  1. FLUOROURACIL [Suspect]
     Indication: COLORECTAL CANCER
     Dosage: 1000 MG DAY AND DAY 8 CYCLIC (1000 MG), INTRAVENOUS (NOT OTHWERWISE SPECIFIED)
     Route: 042
     Dates: start: 20031112, end: 20031119
  2. FOLINIC ACID [Suspect]
     Indication: COLORECTAL CANCER
     Dosage: 40 MG DAY 1 AND DAY 8 CYCLIC (40 MG), INTRAVENOUS (NOT OTHWERWISE SPECIFIED)
     Route: 042
     Dates: start: 20031112, end: 20031119
  3. IRINOTECAN HCL [Suspect]
     Indication: COLORECTAL CANCER
     Dosage: 250 MG/KG DAY 1 AND DAY8 CYCLIC (250 MG/KG)
     Dates: start: 20031112, end: 20031119
  4. PLACEBO [Suspect]
     Indication: COLORECTAL CANCER
     Dosage: (2 IN 1 D), ORAL
     Route: 048
     Dates: start: 20031112, end: 20031123
  5. ATENOLOL [Concomitant]
  6. HYZAAR [Concomitant]
  7. AMITRIPTYLINE HYDROCHLORIDE [Concomitant]

REACTIONS (13)
  - BUNDLE BRANCH BLOCK RIGHT [None]
  - CARDIAC ARREST [None]
  - CONVULSION [None]
  - DIARRHOEA [None]
  - FEBRILE NEUTROPENIA [None]
  - HYPOTENSION [None]
  - LETHARGY [None]
  - MYOCARDIAL INFARCTION [None]
  - RESPIRATORY ARREST [None]
  - SEPTIC SHOCK [None]
  - SINUS TACHYCARDIA [None]
  - VENTRICULAR TACHYCARDIA [None]
  - VOMITING [None]
